FAERS Safety Report 8161337-6 (Version None)
Quarter: 2012Q1

REPORT INFORMATION
  Report Type: 
  Country: None (occurrence: None)
  Receive Date: 20120224
  Receipt Date: 20120215
  Transmission Date: 20120608
  Serious: Yes (Other)
  Sender: FDA-Public Use
  Company Number: AU-JNJFOC-20120208349

PATIENT
  Sex: Male
  Weight: 78.9 kg

DRUGS (6)
  1. CONCERTA [Suspect]
     Indication: PRODUCT USED FOR UNKNOWN INDICATION
     Route: 048
     Dates: start: 20091015, end: 20091224
  2. MELOXICAM [Concomitant]
     Route: 065
  3. IPRATRIN [Concomitant]
     Route: 065
  4. TOPAMAX [Suspect]
     Indication: PRODUCT USED FOR UNKNOWN INDICATION
     Route: 065
     Dates: start: 20090815, end: 20091224
  5. ALBUTEROL SULFATE AUTOHALER [Concomitant]
     Route: 065
  6. AIROMIR AUTOHALER [Concomitant]
     Route: 065

REACTIONS (3)
  - PSYCHOTIC DISORDER [None]
  - HALLUCINATION, AUDITORY [None]
  - PARANOIA [None]
